FAERS Safety Report 12417514 (Version 1)
Quarter: 2016Q2

REPORT INFORMATION
  Report Type: Report from Study
  Country: US (occurrence: US)
  Receive Date: 20160530
  Receipt Date: 20160530
  Transmission Date: 20160815
  Serious: Yes (Other)
  Sender: FDA-Public Use
  Company Number: US-JNJFOC-20150317739

PATIENT
  Sex: Female

DRUGS (1)
  1. REMICADE [Suspect]
     Active Substance: INFLIXIMAB
     Indication: SARCOIDOSIS
     Route: 042

REACTIONS (5)
  - Joint lock [Unknown]
  - Product use issue [Unknown]
  - Headache [Unknown]
  - Abasia [Unknown]
  - Ocular discomfort [Unknown]
